FAERS Safety Report 10465576 (Version 2)
Quarter: 2014Q4

REPORT INFORMATION
  Report Type: Spontaneous
  Country: SA (occurrence: SA)
  Receive Date: 20140919
  Receipt Date: 20141119
  Transmission Date: 20150528
  Serious: Yes (Hospitalization, Other)
  Sender: FDA-Public Use
  Company Number: SA-PFIZER INC-2014256681

PATIENT
  Age: 22 Year
  Sex: Male

DRUGS (1)
  1. PREGABALIN. [Suspect]
     Active Substance: PREGABALIN
     Dosage: 14 CAPS OF 75 MG, SINGLE
     Route: 048

REACTIONS (3)
  - Myoclonic epilepsy [Unknown]
  - Intentional overdose [Unknown]
  - Dizziness [Unknown]
